FAERS Safety Report 10944373 (Version 1)
Quarter: 2015Q1

REPORT INFORMATION
  Report Type: Spontaneous
  Country: US (occurrence: US)
  Receive Date: 20150323
  Receipt Date: 20150323
  Transmission Date: 20150721
  Serious: No
  Sender: FDA-Public Use
  Company Number: US-BIOGENIDEC-2015BI030109

PATIENT
  Age: 54 Year
  Sex: Female

DRUGS (9)
  1. FLOUXETINE [Concomitant]
  2. AVONEX [Suspect]
     Active Substance: INTERFERON BETA-1A
     Indication: MULTIPLE SCLEROSIS
     Route: 030
     Dates: start: 20140216
  3. OMEPRAZOLE. [Concomitant]
     Active Substance: OMEPRAZOLE
  4. TYLENOL [Concomitant]
     Active Substance: ACETAMINOPHEN
  5. VOLTAREN [Concomitant]
     Active Substance: DICLOFENAC SODIUM
  6. WARFARIN [Concomitant]
     Active Substance: WARFARIN
  7. GABAPENTIN. [Concomitant]
     Active Substance: GABAPENTIN
  8. MOM [Concomitant]
     Active Substance: MAGNESIUM HYDROXIDE
  9. SERTRALINE [Concomitant]
     Active Substance: SERTRALINE HYDROCHLORIDE

REACTIONS (1)
  - Transient ischaemic attack [Recovered/Resolved]

NARRATIVE: CASE EVENT DATE: 20150302
